FAERS Safety Report 17775544 (Version 1)
Quarter: 2020Q2

REPORT INFORMATION
  Report Type: Spontaneous
  Country: US (occurrence: US)
  Receive Date: 20200513
  Receipt Date: 20200513
  Transmission Date: 20200714
  Serious: Yes (Life-Threatening, Hospitalization)
  Sender: FDA-Public Use
  Company Number: None

PATIENT
  Age: 12 Day
  Sex: Male
  Weight: 3.6 kg

DRUGS (2)
  1. LIDOCAINE AND PRILOCAINE CREAM [Suspect]
     Active Substance: LIDOCAINE\PRILOCAINE
     Indication: LOCAL ANAESTHESIA
     Dosage: ?          QUANTITY:1 OUNCE(S);?
     Route: 061
     Dates: start: 20200511, end: 20200512
  2. LIDOCAINE AND PRILOCAINE CREAM [Suspect]
     Active Substance: LIDOCAINE\PRILOCAINE
     Indication: CIRCUMCISION
     Dosage: ?          QUANTITY:1 OUNCE(S);?
     Route: 061
     Dates: start: 20200511, end: 20200512

REACTIONS (4)
  - Oxygen saturation decreased [None]
  - Methaemoglobinaemia [None]
  - Accidental overdose [None]
  - Skin discolouration [None]

NARRATIVE: CASE EVENT DATE: 20200512
